FAERS Safety Report 12244952 (Version 4)
Quarter: 2016Q2

REPORT INFORMATION
  Report Type: Spontaneous
  Country: GR (occurrence: GR)
  Receive Date: 20160407
  Receipt Date: 20160428
  Transmission Date: 20160815
  Serious: No
  Sender: FDA-Public Use
  Company Number: PHHY2016GR044220

PATIENT
  Age: 74 Year
  Sex: Male

DRUGS (13)
  1. OXCARBAZEPINE. [Suspect]
     Active Substance: OXCARBAZEPINE
     Dosage: 600 MG, QD
     Route: 065
  2. CHLORPROMAZINE. [Suspect]
     Active Substance: CHLORPROMAZINE
     Indication: BIPOLAR DISORDER
     Dosage: 600 MG, QD
     Route: 065
  3. RISPERIDONE. [Concomitant]
     Active Substance: RISPERIDONE
     Indication: BIPOLAR DISORDER
     Dosage: 50 MG, QD
     Route: 065
  4. AMLODIPINE [Concomitant]
     Active Substance: AMLODIPINE BESYLATE
     Indication: HYPERTENSION
     Dosage: 10 MG, QD
     Route: 065
  5. RISPERIDONE. [Suspect]
     Active Substance: RISPERIDONE
     Indication: BIPOLAR DISORDER
     Dosage: 36 MG, QD
     Route: 048
  6. RISPERIDONE. [Suspect]
     Active Substance: RISPERIDONE
     Dosage: 12 MG, QD
     Route: 048
  7. RISPERIDONE. [Suspect]
     Active Substance: RISPERIDONE
     Dosage: 6 MG, QD
     Route: 048
  8. BIPERIDEN HYDROCHLORIDE [Suspect]
     Active Substance: BIPERIDEN HYDROCHLORIDE
     Indication: BIPOLAR DISORDER
     Dosage: 4 MG, QD
     Route: 065
  9. QUETIAPINE. [Concomitant]
     Active Substance: QUETIAPINE
     Indication: BIPOLAR DISORDER
     Dosage: 300 MG, QD
     Route: 065
  10. MEMANTINE. [Concomitant]
     Active Substance: MEMANTINE
     Indication: BIPOLAR DISORDER
     Dosage: 10 MG, QD
     Route: 065
  11. OXCARBAZEPINE. [Suspect]
     Active Substance: OXCARBAZEPINE
     Indication: BIPOLAR DISORDER
     Dosage: 1200 MG, QD
     Route: 065
  12. AMISULPRIDE [Suspect]
     Active Substance: AMISULPRIDE
     Indication: BIPOLAR DISORDER
     Dosage: 800 MG, QD
     Route: 065
  13. ZUCLOPENTHIXOL [Concomitant]
     Active Substance: ZUCLOPENTHIXOL
     Indication: BIPOLAR DISORDER
     Dosage: 75 MG, QD
     Route: 065

REACTIONS (1)
  - Drug ineffective for unapproved indication [Unknown]
